FAERS Safety Report 6088193-4 (Version None)
Quarter: 2009Q1

REPORT INFORMATION
  Report Type: 
  Country: None (occurrence: None)
  Receive Date: 20090224
  Receipt Date: 20090219
  Transmission Date: 20090719
  Serious: Yes (Death, Hospitalization)
  Sender: FDA-Public Use
  Company Number: US-JNJFOC-20090205318

PATIENT
  Sex: Female
  Weight: 52.16 kg

DRUGS (1)
  1. DURAGESIC-100 [Suspect]
     Indication: BACK PAIN
     Route: 062

REACTIONS (5)
  - COMPARTMENT SYNDROME [None]
  - HOSPITALISATION [None]
  - HYPERSOMNIA [None]
  - IMPAIRED WORK ABILITY [None]
  - INAPPROPRIATE SCHEDULE OF DRUG ADMINISTRATION [None]
